FAERS Safety Report 11870066 (Version 2)
Quarter: 2016Q3

REPORT INFORMATION
  Report Type: Report from Study
  Country: JP (occurrence: JP)
  Receive Date: 20151228
  Receipt Date: 20160930
  Transmission Date: 20161109
  Serious: Yes (Other)
  Sender: FDA-Public Use
  Company Number: JP-ALXN-A201505190AA

PATIENT

DRUGS (10)
  1. NEORAL [Concomitant]
     Active Substance: CYCLOSPORINE
     Dosage: 80 MG, DAILY
     Route: 065
     Dates: end: 20141209
  2. NEORAL [Concomitant]
     Active Substance: CYCLOSPORINE
     Dosage: UNK
  3. NEORAL [Concomitant]
     Active Substance: CYCLOSPORINE
     Indication: PAROXYSMAL NOCTURNAL HAEMOGLOBINURIA
     Dosage: 200 MG, QD
     Route: 065
     Dates: start: 20040818, end: 20110215
  4. NEORAL [Concomitant]
     Active Substance: CYCLOSPORINE
     Dosage: 120 UNK, DAILY
     Route: 065
     Dates: start: 20110216
  5. SOLIRIS [Suspect]
     Active Substance: ECULIZUMAB
     Dosage: UNK
     Route: 042
     Dates: start: 200803
  6. ALFAROL [Concomitant]
     Active Substance: ALFACALCIDOL
     Indication: PRODUCT USED FOR UNKNOWN INDICATION
     Dosage: 1.0 ?G, DAILY
     Route: 065
     Dates: start: 20040525
  7. SOLIRIS [Suspect]
     Active Substance: ECULIZUMAB
     Dosage: 900 MG, Q2W
     Route: 042
     Dates: start: 20140402, end: 20150318
  8. BAKTAR [Concomitant]
     Active Substance: SULFAMETHOXAZOLE\TRIMETHOPRIM
     Indication: PRODUCT USED FOR UNKNOWN INDICATION
     Dosage: 1 TAB, DAILY
     Route: 048
     Dates: start: 20111012, end: 20141112
  9. BONZOL                             /00428701/ [Concomitant]
     Indication: PRODUCT USED FOR UNKNOWN INDICATION
     Dosage: 400 MG, DAILY
     Route: 065
     Dates: start: 20100901
  10. SOLIRIS [Suspect]
     Active Substance: ECULIZUMAB
     Indication: PAROXYSMAL NOCTURNAL HAEMOGLOBINURIA
     Dosage: 900 MG, Q2W
     Route: 042
     Dates: start: 20100804, end: 20110216

REACTIONS (1)
  - Myelodysplastic syndrome [Not Recovered/Not Resolved]

NARRATIVE: CASE EVENT DATE: 20120808
